FAERS Safety Report 5573839-7 (Version None)
Quarter: 2007Q4

REPORT INFORMATION
  Report Type: 
  Country: None (occurrence: None)
  Receive Date: 20071226
  Receipt Date: 20071214
  Transmission Date: 20080405
  Serious: Yes (Other)
  Sender: FDA-Public Use
  Company Number: US-PFIZER INC-2007083828

PATIENT
  Sex: Female

DRUGS (2)
  1. CABERGOLINE [Suspect]
     Indication: PROLACTINOMA
  2. DOSTINEX [Suspect]
     Indication: PROLACTINOMA
     Route: 048
     Dates: start: 20020401, end: 20060601

REACTIONS (2)
  - BLOOD PROLACTIN INCREASED [None]
  - NEOPLASM PROGRESSION [None]
